FAERS Safety Report 9412010 (Version 1)
Quarter: 2013Q3

REPORT INFORMATION
  Report Type: Spontaneous
  Country: US (occurrence: None)
  Receive Date: 20130719
  Receipt Date: 20130719
  Transmission Date: 20140515
  Serious: No
  Sender: FDA-Public Use
  Company Number: None

PATIENT
  Age: 29 None
  Sex: Male
  Weight: 69.9 kg

DRUGS (2)
  1. BUPRENORPHINE/NALOXONE [Suspect]
     Indication: DRUG DEPENDENCE
     Dates: start: 20130610, end: 20130612
  2. BUPRENORPHINE/NALOXONE [Suspect]
     Dates: start: 20130612, end: 20130613

REACTIONS (2)
  - Drug withdrawal syndrome [None]
  - Drug ineffective [None]
